FAERS Safety Report 17681069 (Version 1)
Quarter: 2020Q2

REPORT INFORMATION
  Report Type: Spontaneous
  Country: CA (occurrence: CA)
  Receive Date: 20200417
  Receipt Date: 20200417
  Transmission Date: 20200714
  Serious: Yes (Other)
  Sender: FDA-Public Use
  Company Number: NVSC2020CA101981

PATIENT
  Age: 48 Year
  Sex: Male
  Weight: 74.84 kg

DRUGS (1)
  1. XIIDRA [Suspect]
     Active Substance: LIFITEGRAST
     Indication: DRY EYE
     Dosage: 1 GTT, BID
     Route: 047
     Dates: start: 20200220, end: 20200317

REACTIONS (2)
  - Dacryostenosis acquired [Not Recovered/Not Resolved]
  - Dacryocanaliculitis [Not Recovered/Not Resolved]

NARRATIVE: CASE EVENT DATE: 20200311
